FAERS Safety Report 10168604 (Version 1)
Quarter: 2014Q2

REPORT INFORMATION
  Report Type: Spontaneous
  Country: US (occurrence: US)
  Receive Date: 20140513
  Receipt Date: 20140513
  Transmission Date: 20141212
  Serious: No
  Sender: FDA-Public Use
  Company Number: US-BIOGENIDEC-2014BI043833

PATIENT
  Age: 60 Year
  Sex: Female

DRUGS (4)
  1. AVONEX [Suspect]
     Indication: MULTIPLE SCLEROSIS
     Route: 030
     Dates: start: 20140310
  2. BLACK COHOSH ROOT [Concomitant]
  3. CITALOPRAM HYDROBROMIDE [Concomitant]
  4. ALPRAZOLAM [Concomitant]

REACTIONS (1)
  - Dyspepsia [Unknown]
